FAERS Safety Report 5591053-6 (Version None)
Quarter: 2008Q1

REPORT INFORMATION
  Report Type: 
  Country: None (occurrence: None)
  Receive Date: 20080111
  Receipt Date: 20080111
  Transmission Date: 20080703
  Serious: Yes (Other)
  Sender: FDA-Public Use
  Company Number: None

PATIENT
  Sex: Female
  Weight: 48.9885 kg

DRUGS (2)
  1. CYMBALTA [Suspect]
     Indication: DEPRESSION
     Dosage: 60MG  ONCE A DAY  PO
     Route: 048
     Dates: start: 20071210, end: 20071213
  2. CYMBALTA [Suspect]
     Indication: NEUROPATHY PERIPHERAL
     Dosage: 60MG  ONCE A DAY  PO
     Route: 048
     Dates: start: 20071210, end: 20071213

REACTIONS (1)
  - DELUSION [None]
